FAERS Safety Report 24698113 (Version 2)
Quarter: 2024Q4

REPORT INFORMATION
  Report Type: Spontaneous
  Country: US (occurrence: US)
  Receive Date: 20241204
  Receipt Date: 20241215
  Transmission Date: 20250115
  Serious: No
  Sender: SANOFI AVENTIS
  Company Number: US-SA-2024SA355839

PATIENT
  Age: 63 Year
  Sex: Female

DRUGS (1)
  1. DUPIXENT [Suspect]
     Active Substance: DUPILUMAB
     Indication: Asthma
     Dosage: 600 MG, 1X
     Route: 058
     Dates: start: 20241122, end: 20241122

REACTIONS (13)
  - Rhinorrhoea [Unknown]
  - Condition aggravated [Unknown]
  - Sneezing [Unknown]
  - Lacrimation increased [Unknown]
  - Condition aggravated [Unknown]
  - Skin tightness [Unknown]
  - Condition aggravated [Unknown]
  - Dry skin [Unknown]
  - Pain [Unknown]
  - Eyelids pruritus [Unknown]
  - Condition aggravated [Unknown]
  - Skin exfoliation [Unknown]
  - Condition aggravated [Unknown]

NARRATIVE: CASE EVENT DATE: 20241101
